FAERS Safety Report 7972296-0 (Version None)
Quarter: 2011Q4

REPORT INFORMATION
  Report Type: 
  Country: None (occurrence: None)
  Receive Date: 20111213
  Receipt Date: 20111208
  Transmission Date: 20120403
  Serious: No
  Sender: FDA-Public Use
  Company Number: US-BIOGENIDEC-2010BI035687

PATIENT
  Sex: Female

DRUGS (1)
  1. TYSABRI [Suspect]
     Indication: MULTIPLE SCLEROSIS
     Route: 042
     Dates: start: 20100114, end: 20100705

REACTIONS (5)
  - MEMORY IMPAIRMENT [None]
  - PAIN [None]
  - GLAUCOMA [None]
  - DEPRESSION [None]
  - BLINDNESS [None]
